FAERS Safety Report 5967612-5 (Version None)
Quarter: 2008Q4

REPORT INFORMATION
  Report Type: 
  Country: None (occurrence: None)
  Receive Date: 20081126
  Receipt Date: 20081114
  Transmission Date: 20090506
  Serious: Yes (Hospitalization, Other)
  Sender: FDA-Public Use
  Company Number: PHHY2008GB29230

PATIENT
  Sex: Male

DRUGS (2)
  1. TEGRETOL [Suspect]
     Dosage: 800 MG, BID
     Route: 048
  2. VALPROATE SODIUM [Concomitant]

REACTIONS (3)
  - CARDIAC ARREST [None]
  - DYSPHAGIA [None]
  - HAEMATEMESIS [None]
